FAERS Safety Report 8717062 (Version 2)
Quarter: 2012Q4

REPORT INFORMATION
  Report Type: 
  Country: FR (occurrence: FR)
  Receive Date: 20120810
  Receipt Date: 20121015
  Transmission Date: 20130627
  Serious: Yes (Other)
  Sender: FDA-Public Use
  Company Number: FR-009507513-1208FRA001171

PATIENT
  Age: 60 Year
  Sex: Female

DRUGS (2)
  1. NORSET [Suspect]
     Indication: MAJOR DEPRESSION
     Dosage: 15 mg, bid
     Route: 048
     Dates: start: 201108, end: 20120731
  2. TERALITHE [Suspect]
     Indication: PRODUCT USED FOR UNKNOWN INDICATION
     Dosage: UNK
     Dates: start: 201108, end: 20120731

REACTIONS (2)
  - Pancreatic carcinoma [Unknown]
  - Cholestasis [Unknown]
